FAERS Safety Report 8574907-8 (Version None)
Quarter: 2012Q3

REPORT INFORMATION
  Report Type: 
  Country: None (occurrence: None)
  Receive Date: 20120807
  Receipt Date: 20111007
  Transmission Date: 20120928
  Serious: Yes (Hospitalization)
  Sender: FDA-Public Use
  Company Number: DE-CELGENEUS-062-21660-12060715

PATIENT
  Age: 30 Year
  Sex: Female
  Weight: 70 kg

DRUGS (8)
  1. HERCEPTIN [Concomitant]
     Route: 065
     Dates: start: 20110712, end: 20120104
  2. ABRAXANE [Suspect]
     Dosage: 260 MILLIGRAM/SQ. METER
     Route: 065
     Dates: start: 20110512, end: 20110823
  3. HERCEPTIN [Concomitant]
     Dosage: 496 MILLIGRAM
     Route: 065
     Dates: start: 20110519, end: 20110620
  4. NEULASTA [Concomitant]
     Route: 065
     Dates: start: 20110512, end: 20110823
  5. EPOGEN [Concomitant]
     Route: 065
     Dates: start: 20110512, end: 20110512
  6. ABRAXANE [Suspect]
     Route: 065
     Dates: start: 20110914, end: 20120104
  7. AVASTIN [Concomitant]
     Dosage: 15 MILLIGRAM/KILOGRAM
     Route: 065
     Dates: start: 20110512, end: 20120104
  8. ANTIEMETICS [Concomitant]
     Route: 065
     Dates: start: 20110512, end: 20120104

REACTIONS (5)
  - PAIN [None]
  - ANAEMIA [None]
  - DIARRHOEA [None]
  - EPISTAXIS [None]
  - ALOPECIA [None]
